FAERS Safety Report 8487587 (Version 3)
Quarter: 2013Q3

REPORT INFORMATION
  Report Type: Spontaneous
  Country: US (occurrence: US)
  Receive Date: 20120402
  Receipt Date: 20130805
  Transmission Date: 20140515
  Serious: Yes (Hospitalization)
  Sender: FDA-Public Use
  Company Number: US-US-EMD SERONO, INC.-7121653

PATIENT
  Age: 60 Year
  Sex: Male
  Weight: 82 kg

DRUGS (4)
  1. REBIF [Suspect]
     Indication: MULTIPLE SCLEROSIS
     Route: 058
     Dates: start: 20090116
  2. REBIF [Suspect]
     Route: 058
  3. MAXALT                             /01406501/ [Concomitant]
     Indication: PRODUCT USED FOR UNKNOWN INDICATION
     Route: 048
  4. VITAMIN D                          /00107901/ [Concomitant]
     Indication: PRODUCT USED FOR UNKNOWN INDICATION

REACTIONS (8)
  - Pancreatitis [Unknown]
  - Post procedural haemorrhage [Unknown]
  - Cholelithiasis [Unknown]
  - Haematocrit decreased [Unknown]
  - Influenza like illness [Unknown]
  - Injection site erythema [Not Recovered/Not Resolved]
  - Injection site pain [Not Recovered/Not Resolved]
  - Inappropriate schedule of drug administration [Unknown]
